FAERS Safety Report 24232312 (Version 1)
Quarter: 2024Q3

REPORT INFORMATION
  Report Type: Report from Study
  Country: CO (occurrence: CO)
  Receive Date: 20240821
  Receipt Date: 20240821
  Transmission Date: 20241016
  Serious: Yes (Other)
  Sender: REGENERON
  Company Number: CO-BAYER-2024A087619

PATIENT
  Sex: Female

DRUGS (6)
  1. EYLEA [Suspect]
     Active Substance: AFLIBERCEPT
     Indication: Retinal vein occlusion
     Dosage: RIGHT EYE, SOLUTION FOR INJECTION, 40MG/ML
     Route: 031
     Dates: start: 20221214, end: 20221214
  2. EYLEA [Suspect]
     Active Substance: AFLIBERCEPT
     Dosage: RIGHT EYE, SOLUTION FOR INJECTION, 40MG/ML
     Route: 031
     Dates: start: 20230215, end: 20230215
  3. EYLEA [Suspect]
     Active Substance: AFLIBERCEPT
     Dosage: RIGHT EYE, SOLUTION FOR INJECTION, 40MG/ML
     Route: 031
     Dates: start: 20230412, end: 20230412
  4. EYLEA [Suspect]
     Active Substance: AFLIBERCEPT
     Dosage: RIGHT EYE, SOLUTION FOR INJECTION, 40MG/ML
     Route: 031
     Dates: start: 20230614, end: 20230614
  5. EYLEA [Suspect]
     Active Substance: AFLIBERCEPT
     Dosage: RIGHT EYE, SOLUTION FOR INJECTION, 40MG/ML
     Route: 031
     Dates: start: 20230816, end: 20230816
  6. EYLEA [Suspect]
     Active Substance: AFLIBERCEPT
     Dosage: RIGHT EYE, SOLUTION FOR INJECTION, 40MG/ML
     Route: 031
     Dates: start: 20240510

REACTIONS (4)
  - Cataract operation [Recovering/Resolving]
  - Cataract operation [Recovered/Resolved]
  - Retinal drusen [Recovering/Resolving]
  - Inappropriate schedule of product administration [Unknown]

NARRATIVE: CASE EVENT DATE: 20240301
